FAERS Safety Report 18573441 (Version 1)
Quarter: 2020Q4

REPORT INFORMATION
  Report Type: Spontaneous
  Country: US (occurrence: US)
  Receive Date: 20201125
  Receipt Date: 20201125
  Transmission Date: 20210114
  Serious: No
  Sender: FDA-Public Use
  Company Number: None

PATIENT
  Age: 6 Decade
  Sex: Male

DRUGS (11)
  1. PIPERACILLIN AND TAZOBACTAM [Suspect]
     Active Substance: PIPERACILLIN SODIUM\TAZOBACTAM SODIUM
     Indication: COVID-19
     Dates: start: 2020
  2. TRANEXAMIC ACID. [Suspect]
     Active Substance: TRANEXAMIC ACID
     Indication: COVID-19
     Dates: start: 2020
  3. METHYLPREDNISOLONE. [Suspect]
     Active Substance: METHYLPREDNISOLONE
     Indication: COVID-19
     Dates: start: 2020
  4. IMMUNOGLOBULINS, INTRAVENOUS [Suspect]
     Active Substance: HUMAN IMMUNOGLOBULIN G
     Indication: COVID-19
     Dosage: ?          OTHER DOSE:1 G/KG BODY WEIGHT;?
     Dates: start: 2020
  5. DEXAMETHASONE. [Suspect]
     Active Substance: DEXAMETHASONE
     Indication: COVID-19
     Dates: start: 2020
  6. HEPARIN [Suspect]
     Active Substance: HEPARIN SODIUM
     Indication: COVID-19
     Dates: start: 2020
  7. ROMIPLOSTIM [Suspect]
     Active Substance: ROMIPLOSTIM
     Indication: COVID-19
     Dates: start: 2020
  8. VINCRISTINE [Suspect]
     Active Substance: VINCRISTINE
     Indication: COVID-19
     Dates: start: 2020
  9. CEFTRIAXONE. [Suspect]
     Active Substance: CEFTRIAXONE
     Indication: COVID-19
     Dates: start: 2020
  10. AZITHROMYCIN ANHYDROUS. [Suspect]
     Active Substance: AZITHROMYCIN ANHYDROUS
     Indication: COVID-19
     Dates: start: 2020
  11. CEFAZOLIN [Suspect]
     Active Substance: CEFAZOLIN
     Indication: COVID-19
     Dates: start: 2020

REACTIONS (10)
  - Immune thrombocytopenia [None]
  - Post procedural haemorrhage [None]
  - Renal replacement therapy [None]
  - Haemorrhage [None]
  - Off label use [None]
  - Staphylococcal infection [None]
  - Pneumonia bacterial [None]
  - Acute kidney injury [None]
  - Intensive care unit acquired weakness [None]
  - Intraventricular haemorrhage [None]
